FAERS Safety Report 6300220-5 (Version None)
Quarter: 2009Q3

REPORT INFORMATION
  Report Type: 
  Country: None (occurrence: None)
  Receive Date: 20090806
  Receipt Date: 20090731
  Transmission Date: 20100115
  Serious: Yes (Hospitalization)
  Sender: FDA-Public Use
  Company Number: IT-ABBOTT-09P-083-0584171-00

PATIENT
  Sex: Male

DRUGS (1)
  1. TIARTAN [Suspect]
     Indication: HYPERTENSION
     Route: 048
     Dates: start: 20090323, end: 20090330

REACTIONS (1)
  - SYNCOPE [None]
